FAERS Safety Report 6498879-5 (Version None)
Quarter: 2009Q4

REPORT INFORMATION
  Report Type: 
  Country: None (occurrence: None)
  Receive Date: 20091127
  Receipt Date: 20081027
  Transmission Date: 20100525
  Serious: No
  Sender: FDA-Public Use
  Company Number: 280736

PATIENT
  Age: 67 Year
  Sex: Male

DRUGS (1)
  1. NOVOLOG [Suspect]
     Indication: TYPE 1 DIABETES MELLITUS
     Dosage: 25-35 IU, QD, SUBCUTAN.-PUMP
     Route: 058
     Dates: start: 20070801

REACTIONS (3)
  - BLOOD GLUCOSE INCREASED [None]
  - HEADACHE [None]
  - NAUSEA [None]
